FAERS Safety Report 13853762 (Version 1)
Quarter: 2017Q3

REPORT INFORMATION
  Report Type: Spontaneous
  Country: US (occurrence: US)
  Receive Date: 20170810
  Receipt Date: 20170810
  Transmission Date: 20171127
  Serious: No
  Sender: FDA-Public Use
  Company Number: US-ELI_LILLY_AND_COMPANY-US201708002702

PATIENT
  Sex: Male

DRUGS (9)
  1. HUMULIN R [Suspect]
     Active Substance: INSULIN HUMAN
     Dosage: 20 U, DAILY
     Route: 065
  2. HUMULIN R [Suspect]
     Active Substance: INSULIN HUMAN
     Dosage: 21 U, EACH MORNING
     Route: 065
  3. HUMULIN R [Suspect]
     Active Substance: INSULIN HUMAN
     Dosage: 11 U, EACH EVENING
     Route: 065
  4. HUMULIN R [Suspect]
     Active Substance: INSULIN HUMAN
     Dosage: 11 U, EACH EVENING
     Route: 065
  5. HUMULIN R [Suspect]
     Active Substance: INSULIN HUMAN
     Indication: TYPE 1 DIABETES MELLITUS
     Dosage: 21 U, EACH MORNING
     Route: 065
  6. HUMULIN R [Suspect]
     Active Substance: INSULIN HUMAN
     Dosage: 16 U, DAILY
     Route: 065
  7. HUMULIN R [Suspect]
     Active Substance: INSULIN HUMAN
     Dosage: 16 U, DAILY
     Route: 065
  8. HUMULIN R [Suspect]
     Active Substance: INSULIN HUMAN
     Dosage: 20 U, DAILY
     Route: 065
  9. METFORMIN [Concomitant]
     Active Substance: METFORMIN HYDROCHLORIDE
     Indication: TYPE 1 DIABETES MELLITUS

REACTIONS (2)
  - Wrong technique in product usage process [Unknown]
  - Memory impairment [Unknown]
